FAERS Safety Report 7220918-4 (Version None)
Quarter: 2011Q1

REPORT INFORMATION
  Report Type: 
  Country: None (occurrence: None)
  Receive Date: 20110112
  Receipt Date: 20101124
  Transmission Date: 20110831
  Serious: No
  Sender: FDA-Public Use
  Company Number: A0896389A

PATIENT
  Age: 58 Year
  Sex: Male

DRUGS (2)
  1. SIMVASTATIN [Concomitant]
  2. JALYN [Suspect]
     Dosage: 1CAP PER DAY
     Route: 048
     Dates: start: 20101111, end: 20101120

REACTIONS (1)
  - BACK PAIN [None]
